FAERS Safety Report 9464315 (Version 5)
Quarter: 2014Q2

REPORT INFORMATION
  Report Type: Spontaneous
  Country: US (occurrence: US)
  Receive Date: 20130819
  Receipt Date: 20140612
  Transmission Date: 20141212
  Serious: Yes (Hospitalization, Other)
  Sender: FDA-Public Use
  Company Number: US-009507513-1308USA006560

PATIENT
  Sex: Female
  Weight: 64.4 kg

DRUGS (3)
  1. FOSAMAX [Suspect]
     Indication: OSTEOPOROSIS
     Dosage: 10 MG, UNK
     Route: 048
     Dates: start: 19951214, end: 200110
  2. FOSAMAX [Suspect]
     Indication: OSTEOPENIA
     Dosage: 70 MG, QW
     Route: 048
     Dates: start: 200110, end: 2008
  3. ALENDRONATE SODIUM [Suspect]
     Indication: OSTEOPOROSIS
     Dosage: 70 MG, UNK
     Route: 048
     Dates: start: 200803, end: 201202

REACTIONS (37)
  - Femur fracture [Recovering/Resolving]
  - Intramedullary rod insertion [Unknown]
  - Femur fracture [Unknown]
  - Intramedullary rod insertion [Unknown]
  - Upper limb fracture [Unknown]
  - Humerus fracture [Unknown]
  - Bipolar disorder [Unknown]
  - Spinal laminectomy [Unknown]
  - Adverse event [Unknown]
  - Pain [Unknown]
  - Anxiety [Unknown]
  - Depression [Unknown]
  - Rheumatoid arthritis [Unknown]
  - Vitiligo [Unknown]
  - Kyphosis [Unknown]
  - Spinal osteoarthritis [Unknown]
  - Hyperlipidaemia [Unknown]
  - Anaemia postoperative [Unknown]
  - Emphysema [Unknown]
  - Mitral valve prolapse [Unknown]
  - Cerebrovascular disorder [Unknown]
  - Asthma [Unknown]
  - Essential hypertension [Unknown]
  - Intervertebral disc degeneration [Unknown]
  - Barrett^s oesophagus [Unknown]
  - Aortic valve incompetence [Unknown]
  - Pubis fracture [Recovered/Resolved]
  - Coronary artery disease [Unknown]
  - Hiatus hernia [Unknown]
  - Electrocardiogram T wave abnormal [Unknown]
  - Left ventricular hypertrophy [Unknown]
  - Scapula fracture [Unknown]
  - Rib fracture [Unknown]
  - Embolism arterial [Unknown]
  - Oedema [Unknown]
  - Gastrooesophageal reflux disease [Unknown]
  - Abdominal distension [Unknown]
